FAERS Safety Report 10952953 (Version 1)
Quarter: 2015Q1

REPORT INFORMATION
  Report Type: Spontaneous
  Country: TR (occurrence: None)
  Receive Date: 20150323
  Receipt Date: 20150323
  Transmission Date: 20150721
  Serious: Yes (Life-Threatening)
  Sender: FDA-Public Use
  Company Number: FK201501228

PATIENT
  Age: 2 Year
  Sex: Female

DRUGS (2)
  1. COLISTIMETHATE [Suspect]
     Active Substance: COLISTIMETHATE SODIUM
     Indication: NOSOCOMIAL INFECTION
     Dosage: INTRAVENOUS (NOT OTHERWISE SPECIFIED)
     Route: 042
  2. AMINOGLYCOSIDE (AMINOGLYCOSIDE ANTIBACTERIALS) [Suspect]
     Active Substance: UNSPECIFIED INGREDIENT
     Indication: NOSOCOMIAL INFECTION

REACTIONS (1)
  - Acute kidney injury [None]
